FAERS Safety Report 5219866-0 (Version None)
Quarter: 2007Q1

REPORT INFORMATION
  Report Type: 
  Country: None (occurrence: None)
  Receive Date: 20070125
  Receipt Date: 20070116
  Transmission Date: 20070707
  Serious: Yes (Disabling)
  Sender: FDA-Public Use
  Company Number: FR-PFIZER INC-2007005160

PATIENT
  Age: 64 Year
  Sex: Female
  Weight: 57 kg

DRUGS (5)
  1. ARTHROTEC [Suspect]
     Dosage: TEXT:2 DF
     Route: 048
  2. PIASCLEDINE [Suspect]
     Dosage: TEXT:1 DF
     Route: 048
  3. RIVOTRIL [Suspect]
     Indication: DEPRESSION
     Route: 048
  4. KERLONE [Suspect]
     Dosage: TEXT:0.5 DF
     Route: 048
  5. PROZAC [Suspect]
     Indication: DEPRESSION
     Dosage: TEXT:1 DF
     Route: 048

REACTIONS (4)
  - CATARACT [None]
  - MACULOPATHY [None]
  - RETINAL ARTERY THROMBOSIS [None]
  - VISUAL ACUITY REDUCED [None]
